FAERS Safety Report 9648942 (Version 3)
Quarter: 2015Q1

REPORT INFORMATION
  Report Type: Spontaneous
  Country: US (occurrence: None)
  Receive Date: 20131018
  Receipt Date: 20150120
  Transmission Date: 20150721
  Serious: No
  Sender: FDA-Public Use
  Company Number: AEGR000125

PATIENT
  Age: 37 Year
  Sex: Female
  Weight: 107.5 kg

DRUGS (16)
  1. LOSARTAN POTASSIUM AND HYDROCHLOROTHIAZIDE (HYDROCHLOROTHIAZIDE, LOSARTAN POTASSIUM) [Concomitant]
  2. CIPROFLOXACIN (CIPROFLOXACIN HYDROCHLORIDE) [Concomitant]
  3. BYSTOLIC (NEBIVOLOL HYDROCHLORIDE) [Concomitant]
  4. NITROLINGUAL (GLYCERYL TRINITRATE) [Concomitant]
  5. JUXTAPID [Suspect]
     Active Substance: LOMITAPIDE MESYLATE
     Indication: TYPE IIA HYPERLIPIDAEMIA
     Route: 048
     Dates: start: 20130716, end: 20131125
  6. VENTOLIN (SALBUTAMOL SULFATE) [Concomitant]
  7. PLAVIX (CLOPIDOGREL BISULFATE) [Concomitant]
  8. CRESTOR [Concomitant]
     Active Substance: ROSUVASTATIN CALCIUM
  9. HYDROCHLOROTHIAZIDE. [Concomitant]
     Active Substance: HYDROCHLOROTHIAZIDE
  10. ZETIA [Concomitant]
     Active Substance: EZETIMIBE
  11. VYTORIN [Concomitant]
     Active Substance: EZETIMIBE\SIMVASTATIN
  12. ASPIRIN (ACETYLSALICYLIC ACID) [Concomitant]
     Active Substance: ASPIRIN
  13. PRILOSEC [Concomitant]
     Active Substance: OMEPRAZOLE MAGNESIUM
  14. OMEGA 3 (FISH OIL) [Concomitant]
     Active Substance: OMEGA-3 FATTY ACIDS
  15. LOSARTAN (LOSARTAN POTASSIUM) [Concomitant]
  16. VITAMIN E (TOCOPHERYL ACETATE) [Concomitant]

REACTIONS (2)
  - Abdominal pain upper [None]
  - Diverticulitis [None]

NARRATIVE: CASE EVENT DATE: 20130808
